FAERS Safety Report 16088435 (Version 1)
Quarter: 2019Q1

REPORT INFORMATION
  Report Type: Spontaneous
  Country: US (occurrence: US)
  Receive Date: 20190214
  Receipt Date: 20190214
  Transmission Date: 20190418
  Serious: No
  Sender: FDA-Public Use
  Company Number: None

PATIENT
  Age: 16 Year
  Sex: Female
  Weight: 60.75 kg

DRUGS (1)
  1. SKIN PHARMACY ADVANCED ACNE THERAPY CLARIFYING DAILY CLEANSER [Suspect]
     Active Substance: SALICYLIC ACID
     Indication: ACNE
     Dosage: QUANTITY:4 OUNCES; AT BEDTIME?
     Route: 061
     Dates: start: 20190212, end: 20190212

REACTIONS (1)
  - Hypersensitivity [None]

NARRATIVE: CASE EVENT DATE: 20190212
